FAERS Safety Report 6017419-8 (Version None)
Quarter: 2008Q4

REPORT INFORMATION
  Report Type: 
  Country: None (occurrence: None)
  Receive Date: 20081223
  Receipt Date: 20081215
  Transmission Date: 20090506
  Serious: Yes (Other)
  Sender: FDA-Public Use
  Company Number: PHEH2006US15202

PATIENT
  Sex: Female
  Weight: 81.633 kg

DRUGS (5)
  1. ZOMETA [Suspect]
     Indication: METASTASES TO SPINE
     Dosage: UNK
     Dates: start: 20040101, end: 20060901
  2. ZOMETA [Suspect]
     Dosage: UNK
     Dates: start: 20070601
  3. RADIATION THERAPY [Concomitant]
     Indication: METASTASES TO BONE
     Dosage: UNK
     Dates: start: 20040101
  4. FEMARA [Concomitant]
     Dosage: UNK
     Dates: end: 20060901
  5. FEMARA [Concomitant]
     Dosage: UNK

REACTIONS (27)
  - ALPHA HAEMOLYTIC STREPTOCOCCAL INFECTION [None]
  - ANXIETY [None]
  - BONE DISORDER [None]
  - BONE SWELLING [None]
  - DECREASED INTEREST [None]
  - DENTAL IMPLANTATION [None]
  - ENDODONTIC PROCEDURE [None]
  - EXCESSIVE GRANULATION TISSUE [None]
  - FAILURE OF IMPLANT [None]
  - GENERAL PHYSICAL HEALTH DETERIORATION [None]
  - IMPAIRED HEALING [None]
  - JAW DISORDER [None]
  - LOOSE TOOTH [None]
  - ORAL CAVITY FISTULA [None]
  - OSTEOLYSIS [None]
  - OSTEONECROSIS [None]
  - PAIN [None]
  - POST PROCEDURAL DRAINAGE [None]
  - PRIMARY SEQUESTRUM [None]
  - PURULENT DISCHARGE [None]
  - SWELLING FACE [None]
  - THERAPEUTIC PROCEDURE [None]
  - TOOTH DISORDER [None]
  - TOOTH EXTRACTION [None]
  - TOOTH IMPACTED [None]
  - TOOTH INFECTION [None]
  - TOOTHACHE [None]
